FAERS Safety Report 4814619-7 (Version None)
Quarter: 2005Q4

REPORT INFORMATION
  Report Type: 
  Country: None (occurrence: None)
  Receive Date: 20051028
  Receipt Date: 20041210
  Transmission Date: 20060501
  Serious: Yes (Other)
  Sender: FDA-Public Use
  Company Number: US-GLAXOSMITHKLINE-A0536870A

PATIENT
  Age: 75 Year
  Sex: Male

DRUGS (3)
  1. ADVAIR DISKUS 100/50 [Suspect]
     Indication: ASTHMA
     Dosage: 1PUFF TWICE PER DAY
     Route: 055
     Dates: start: 19990101
  2. TIMOPTIC [Concomitant]
  3. PROVENTIL [Concomitant]

REACTIONS (3)
  - ASTHMA [None]
  - FATIGUE [None]
  - THROAT IRRITATION [None]
